FAERS Safety Report 20706747 (Version 1)
Quarter: 2022Q2

REPORT INFORMATION
  Report Type: Spontaneous
  Country: US (occurrence: None)
  Receive Date: 20220413
  Receipt Date: 20220413
  Transmission Date: 20220721
  Serious: Yes (Hospitalization)
  Sender: FDA-Public Use
  Company Number: None

PATIENT
  Age: 43 Year
  Sex: Male

DRUGS (1)
  1. ZARXIO [Suspect]
     Active Substance: FILGRASTIM-SNDZ
     Indication: Anal cancer
     Dosage: OTHER STRENGTH : 480MCG/0.8ML;?DOSE AND FREQUENCY: INJECT 480MCG SUBCUTANEOUS DAILY FOR 7 DAYS EVERY
     Route: 058
     Dates: start: 20220401

REACTIONS (3)
  - Cerebrovascular accident [None]
  - Dyspnoea [None]
  - Dysphagia [None]

NARRATIVE: CASE EVENT DATE: 20220408
